FAERS Safety Report 5067963-5 (Version None)
Quarter: 2006Q3

REPORT INFORMATION
  Report Type: 
  Country: None (occurrence: None)
  Receive Date: 20060802
  Receipt Date: 20060728
  Transmission Date: 20061208
  Serious: Yes (Other)
  Sender: FDA-Public Use
  Company Number: US-MERCK-0607USA05769

PATIENT
  Age: 84 Year
  Sex: Male

DRUGS (10)
  1. PROSCAR [Suspect]
     Indication: BENIGN PROSTATIC HYPERPLASIA
     Route: 048
     Dates: start: 19960101
  2. HYTRIN [Concomitant]
     Route: 065
  3. ZOCOR [Concomitant]
     Route: 065
  4. PLAVIX [Concomitant]
     Route: 065
  5. ATENOLOL [Concomitant]
     Route: 065
  6. PLENDIL [Concomitant]
     Route: 065
  7. POTASSIUM (UNSPECIFIED) [Concomitant]
     Route: 065
  8. LISINOPRIL [Concomitant]
     Route: 065
  9. IRON (UNSPECIFIED) [Concomitant]
     Route: 065
  10. LOVASTATIN [Concomitant]
     Route: 065

REACTIONS (1)
  - BREAST CANCER MALE [None]
